FAERS Safety Report 7300782-5 (Version None)
Quarter: 2011Q1

REPORT INFORMATION
  Report Type: 
  Country: None (occurrence: None)
  Receive Date: 20110103
  Receipt Date: 20100920
  Transmission Date: 20110831
  Serious: Yes (Life-Threatening)
  Sender: FDA-Public Use
  Company Number: US-005209

PATIENT
  Age: 63 Year
  Sex: Female
  Weight: 73 kg

DRUGS (8)
  1. ENALAPRIL MALEATE [Concomitant]
  2. ASPIRIN [Concomitant]
  3. ACTONEL [Concomitant]
  4. CALCIUM (CALCIUM) [Concomitant]
  5. LEVOTHYROXINE SODIUM [Concomitant]
  6. MULTIHANCE [Suspect]
     Indication: NUCLEAR MAGNETIC RESONANCE IMAGING BRAIN
     Dosage: 10ML ONCE INTRAVENOUS (NOT OTHERWISE SPECIFIED)
     Route: 042
     Dates: start: 20100914, end: 20100914
  7. MULTIHANCE [Suspect]
     Indication: AMNESIA
     Dosage: 10ML ONCE INTRAVENOUS (NOT OTHERWISE SPECIFIED)
     Route: 042
     Dates: start: 20100914, end: 20100914
  8. MULTIHANCE [Suspect]
     Indication: HEMIPARESIS
     Dosage: 10ML ONCE INTRAVENOUS (NOT OTHERWISE SPECIFIED)
     Route: 042
     Dates: start: 20100914, end: 20100914

REACTIONS (1)
  - ANAPHYLACTIC REACTION [None]
